FAERS Safety Report 4732446-6 (Version None)
Quarter: 2005Q3

REPORT INFORMATION
  Report Type: 
  Country: None (occurrence: None)
  Receive Date: 20050801
  Receipt Date: 20050721
  Transmission Date: 20060218
  Serious: Yes (Other)
  Sender: FDA-Public Use
  Company Number: HQWYE362221JUL05

PATIENT
  Age: 24 Year
  Sex: Female
  Weight: 87.7 kg

DRUGS (1)
  1. MYLOTARG [Suspect]
     Indication: ACUTE MYELOID LEUKAEMIA
     Dosage: 18 MG 1X PER 1 DAY, INTRAVENOUS
     Route: 042
     Dates: start: 20041216, end: 20041216

REACTIONS (5)
  - CHILLS [None]
  - HYPERTENSION [None]
  - HYPOXIA [None]
  - NAUSEA [None]
  - PYREXIA [None]
